FAERS Safety Report 4545401-6 (Version None)
Quarter: 2005Q1

REPORT INFORMATION
  Report Type: 
  Country: None (occurrence: None)
  Receive Date: 20050103
  Receipt Date: 20041229
  Transmission Date: 20050727
  Serious: Yes (Life-Threatening, Other)
  Sender: FDA-Public Use
  Company Number: TCI2004A04033

PATIENT
  Age: 83 Year
  Sex: Female

DRUGS (11)
  1. LANSAP 400 (LANSOPRAZOLE, CLARITHROMYCIN, AMOXICILLIN) (PREPARATION FO [Suspect]
     Indication: HELICOBACTER INFECTION
     Dosage: 1 CARD (0.5 CARD, 2 IN 1 D) PER ORAL
     Route: 048
     Dates: start: 20041008, end: 20041014
  2. PREDNISOLONE [Concomitant]
  3. BLOPRESS TABLETS 8 (CANDESARTAN CILEXETIL) (TABLETS) [Concomitant]
  4. HICEE GRANULES (ASCORBIC ACID) (GRANULATE) [Concomitant]
  5. LASIX [Concomitant]
  6. ADONA (AC-17) (CARBAZOCHROME SODIUM SULFONATE) (TABLETS) [Concomitant]
  7. TRANSAMIN (TRANEXAMIC ACID) (CAPSULES) [Concomitant]
  8. APLACE (TROXIPIDE) (FINE GRANULES) [Concomitant]
  9. ASPARA K (ASPARTATE POTASSIUM) (TABLETS) [Concomitant]
  10. LANIRAPID (METILDIGOXIN) (TABLETS) [Concomitant]
  11. CONIEL (BENIDIPINE HYDROCHLORIDE) (TABLETS) [Concomitant]

REACTIONS (12)
  - CLOSTRIDIUM COLITIS [None]
  - ENTEROCOLITIS HAEMORRHAGIC [None]
  - HAEMOGLOBIN DECREASED [None]
  - HAEMORRHAGE [None]
  - HEADACHE [None]
  - HEPATIC FUNCTION ABNORMAL [None]
  - KLEBSIELLA INFECTION [None]
  - OSTEOMYELITIS [None]
  - PLATELET COUNT DECREASED [None]
  - RENAL IMPAIRMENT [None]
  - SEPTIC SHOCK [None]
  - SUPERINFECTION [None]
